FAERS Safety Report 13073220 (Version 1)
Quarter: 2016Q4

REPORT INFORMATION
  Report Type: Report from Study
  Country: US (occurrence: US)
  Receive Date: 20161229
  Receipt Date: 20161229
  Transmission Date: 20170207
  Serious: Yes (Life-Threatening, Hospitalization, Other)
  Sender: FDA-Public Use
  Company Number: US-PFIZER INC-2016602686

PATIENT

DRUGS (5)
  1. ACETAMINOPHEN. [Concomitant]
     Active Substance: ACETAMINOPHEN
     Dosage: 15 MG/KG, GIVEN AROUND THE CLOCK THROUGHOUT THE POSTOPERATIVE PERIOD
     Route: 048
  2. DIAZEPAM. [Concomitant]
     Active Substance: DIAZEPAM
     Dosage: 0.05 MG/KG FOR THE FIRST 24, THEN INCREASING TO 0.1 MG/KG
  3. MORPHINE SULFATE. [Suspect]
     Active Substance: MORPHINE SULFATE
     Indication: ANALGESIC THERAPY
     Dosage: 11.8 MCG/KG
     Route: 039
  4. OXYCODONE [Concomitant]
     Active Substance: OXYCODONE
     Dosage: STARTING AT 18 H POSTINTRATHECAL MORPHINE INJECTION; MAXIMUM DOSE-5MG
     Route: 048
  5. KETOROLAC [Concomitant]
     Active Substance: KETOROLAC\KETOROLAC TROMETHAMINE
     Dosage: 0.5 MG IV/MAX 15 MG, GIVEN AROUND THE CLOCK THROUGHOUT THE POSTOPERATIVE PERIOD
     Route: 042

REACTIONS (1)
  - Transcranial electrical motor evoked potential monitoring abnormal [Recovered/Resolved]
